APPROVED DRUG PRODUCT: FIRVANQ KIT
Active Ingredient: VANCOMYCIN HYDROCHLORIDE
Strength: EQ 25MG BASE/ML
Dosage Form/Route: FOR SOLUTION;ORAL
Application: N208910 | Product #001 | TE Code: AB
Applicant: AZURITY PHARMACEUTICALS INC
Approved: Jan 26, 2018 | RLD: Yes | RS: Yes | Type: RX

PATENTS:
Patent 10959947 | Expires: Mar 13, 2035
Patent 10959947 | Expires: Mar 13, 2035
Patent 10959948 | Expires: Mar 13, 2035
Patent 10959948 | Expires: Mar 13, 2035
Patent 10959949 | Expires: Mar 13, 2035
Patent 10959949 | Expires: Mar 13, 2035
Patent 10688046 | Expires: Mar 13, 2035
Patent 10959946 | Expires: Mar 13, 2035
Patent 10493028 | Expires: Mar 13, 2035
Patent 11638692 | Expires: Mar 13, 2035